FAERS Safety Report 13639897 (Version 1)
Quarter: 2017Q2

REPORT INFORMATION
  Report Type: Spontaneous
  Country: US (occurrence: US)
  Receive Date: 20170609
  Receipt Date: 20170609
  Transmission Date: 20170830
  Serious: No
  Sender: FDA-Public Use
  Company Number: US-ROCHE-1177273

PATIENT
  Age: 48 Year
  Sex: Male

DRUGS (3)
  1. CLONAZEPAM. [Suspect]
     Active Substance: CLONAZEPAM
     Indication: DEPRESSION
     Route: 065
  2. ZIPRASIDONE. [Interacting]
     Active Substance: ZIPRASIDONE
     Indication: DEPRESSION
     Route: 065
  3. BUPROPION XL [Interacting]
     Active Substance: BUPROPION
     Indication: DEPRESSION
     Route: 048

REACTIONS (1)
  - Drug interaction [Unknown]
